FAERS Safety Report 7173572-4 (Version None)
Quarter: 2010Q4

REPORT INFORMATION
  Report Type: 
  Country: None (occurrence: None)
  Receive Date: 20101219
  Receipt Date: 20100303
  Transmission Date: 20110411
  Serious: No
  Sender: FDA-Public Use
  Company Number: US-AMGEN-KDL397040

PATIENT

DRUGS (4)
  1. ENBREL [Suspect]
     Indication: PSORIASIS
     Dosage: UNK UNK, UNK
     Dates: start: 20060101
  2. INFLIXIMAB [Suspect]
     Dosage: UNK UNK, UNK
     Dates: start: 20080220, end: 20091001
  3. ADALIMUMAB [Suspect]
     Dosage: UNK UNK, UNK
     Dates: start: 20070101
  4. FEXOFENADINE HCL [Concomitant]

REACTIONS (2)
  - DRUG INEFFECTIVE [None]
  - HERPES ZOSTER [None]
